FAERS Safety Report 16043057 (Version 4)
Quarter: 2019Q2

REPORT INFORMATION
  Report Type: Spontaneous
  Country: CN (occurrence: CN)
  Receive Date: 20190306
  Receipt Date: 20190415
  Transmission Date: 20190711
  Serious: Yes (Other)
  Sender: FDA-Public Use
  Company Number: CN-GLAXOSMITHKLINE-CN2019GSK036893

PATIENT
  Age: 32 Year
  Sex: Male

DRUGS (1)
  1. VOLTAREN [Suspect]
     Active Substance: DICLOFENAC SODIUM
     Indication: ARTHRITIS
     Dosage: 1 DF, SINGLE, TABLET
     Route: 048
     Dates: start: 20190228

REACTIONS (4)
  - Abdominal pain upper [Recovered/Resolved]
  - Suspected counterfeit product [Unknown]
  - Haematochezia [Recovered/Resolved]
  - Product complaint [Unknown]

NARRATIVE: CASE EVENT DATE: 20190228
